FAERS Safety Report 7336630-7 (Version None)
Quarter: 2011Q1

REPORT INFORMATION
  Report Type: 
  Country: None (occurrence: None)
  Receive Date: 20110308
  Receipt Date: 20110228
  Transmission Date: 20110831
  Serious: Yes (Other)
  Sender: FDA-Public Use
  Company Number: JP-AMGEN-JPNSP2011011788

PATIENT
  Age: 60 Year
  Sex: Female

DRUGS (4)
  1. ALENDRONATE SODIUM [Concomitant]
     Dosage: UNK
  2. ENBREL [Suspect]
     Dosage: 25 MG, WEEKLY
     Route: 058
     Dates: end: 20110209
  3. ENBREL [Suspect]
     Indication: RHEUMATOID ARTHRITIS
     Dosage: 50 MG, WEEKLY
     Route: 058
     Dates: start: 20050701
  4. MUCODYNE [Concomitant]
     Dosage: UNK

REACTIONS (1)
  - LIVER DISORDER [None]
